FAERS Safety Report 8554598-2 (Version None)
Quarter: 2012Q3

REPORT INFORMATION
  Report Type: 
  Country: None (occurrence: None)
  Receive Date: 20120731
  Receipt Date: 20120725
  Transmission Date: 20120928
  Serious: No
  Sender: FDA-Public Use
  Company Number: US-PFIZER INC-2012181448

PATIENT
  Sex: Female

DRUGS (2)
  1. VENLAFAXINE HCL [Suspect]
     Dosage: UNK
  2. TOPAMAX [Suspect]
     Dosage: UNK

REACTIONS (3)
  - PRURITUS [None]
  - FEELING HOT [None]
  - HYPERHIDROSIS [None]
